FAERS Safety Report 6480534-9 (Version None)
Quarter: 2009Q4

REPORT INFORMATION
  Report Type: 
  Country: None (occurrence: None)
  Receive Date: 20091202
  Receipt Date: 20091118
  Transmission Date: 20100525
  Serious: Yes (Other)
  Sender: FDA-Public Use
  Company Number: ALL1-2009-03722

PATIENT
  Age: 6 Year
  Sex: Male

DRUGS (2)
  1. VYVANSE [Suspect]
     Indication: DRUG USE FOR UNKNOWN INDICATION
     Dosage: 1X/DAY:QD ; 60 MG, 1X/DAY:QD, ORAL
     Route: 048
     Dates: start: 20090701, end: 20090101
  2. VYVANSE [Suspect]
     Indication: DRUG USE FOR UNKNOWN INDICATION
     Dosage: 1X/DAY:QD ; 60 MG, 1X/DAY:QD, ORAL
     Route: 048
     Dates: start: 20090101

REACTIONS (3)
  - HALLUCINATION [None]
  - PARANOIA [None]
  - SCREAMING [None]
